FAERS Safety Report 8909266 (Version 2)
Quarter: 2012Q4

REPORT INFORMATION
  Report Type: Spontaneous
  Country: US (occurrence: None)
  Receive Date: 20121026
  Receipt Date: 20121115
  Transmission Date: 20130627
  Serious: Yes (Hospitalization, Other)
  Sender: FDA-Public Use
  Company Number: 2012PROUSA02131

PATIENT
  Age: 85 Year
  Sex: Male
  Weight: 80.3 kg

DRUGS (3)
  1. PROVENGE (SIPULEUCEL-T) SUSPENSION, 250 ML [Suspect]
     Indication: PROSTATE CANCER METASTATIC
     Route: 042
     Dates: start: 20120517, end: 20120517
  2. PROVENGE (SIPULEUCEL-T) SUSPENSION, 250 ML [Suspect]
     Indication: PROSTATE CANCER METASTATIC
     Route: 042
     Dates: start: 20120601, end: 20120601
  3. PROVENGE (SIPULEUCEL-T) SUSPENSION, 250 ML [Suspect]
     Indication: PROSTATE CANCER METASTATIC
     Route: 042
     Dates: start: 20120608, end: 20120608

REACTIONS (8)
  - Anaemia [None]
  - Bronchitis [None]
  - Duodenal ulcer haemorrhage [None]
  - Asthenia [None]
  - Fatigue [None]
  - Haemorrhagic anaemia [None]
  - Antibody test positive [None]
  - Atrial flutter [None]
